FAERS Safety Report 12521149 (Version 1)
Quarter: 2016Q2

REPORT INFORMATION
  Report Type: Spontaneous
  Country: US (occurrence: None)
  Receive Date: 20160630
  Receipt Date: 20160630
  Transmission Date: 20160815
  Serious: Yes (Hospitalization)
  Sender: FDA-Public Use
  Company Number: None

PATIENT
  Age: 94 Year
  Sex: Female
  Weight: 72.5 kg

DRUGS (11)
  1. MELATONIN [Concomitant]
     Active Substance: MELATONIN
  2. LASIX [Concomitant]
     Active Substance: FUROSEMIDE
  3. CELEXA [Concomitant]
     Active Substance: CITALOPRAM HYDROBROMIDE
  4. MACRODANTIN [Concomitant]
     Active Substance: NITROFURANTOIN
  5. APAP [Concomitant]
     Active Substance: ACETAMINOPHEN
  6. ZOFRAN [Concomitant]
     Active Substance: ONDANSETRON HYDROCHLORIDE
  7. LISINOPRIL. [Concomitant]
     Active Substance: LISINOPRIL
  8. MOM [Concomitant]
     Active Substance: MAGNESIUM HYDROXIDE
  9. KLONOPIN [Concomitant]
     Active Substance: CLONAZEPAM
  10. XARELTO [Suspect]
     Active Substance: RIVAROXABAN
     Indication: DEEP VEIN THROMBOSIS
     Route: 048
     Dates: start: 20160615, end: 20160625
  11. MEGACE [Concomitant]
     Active Substance: MEGESTROL ACETATE

REACTIONS (2)
  - Melaena [None]
  - Shock [None]

NARRATIVE: CASE EVENT DATE: 20160624
